FAERS Safety Report 23642591 (Version 1)
Quarter: 2024Q1

REPORT INFORMATION
  Report Type: Spontaneous
  Country: NL (occurrence: NL)
  Receive Date: 20240318
  Receipt Date: 20240318
  Transmission Date: 20240409
  Serious: Yes (Death, Life-Threatening, Hospitalization)
  Sender: FDA-Public Use
  Company Number: None

PATIENT
  Age: 59 Year
  Sex: Male

DRUGS (45)
  1. DEXAMETHASONE [Suspect]
     Active Substance: DEXAMETHASONE
     Indication: Plasma cell myeloma
     Route: 065
     Dates: start: 20210314, end: 20210322
  2. DEXAMETHASONE [Suspect]
     Active Substance: DEXAMETHASONE
     Indication: Plasma cell myeloma
     Dosage: LAST ADMIN DATE WAS 2021
     Route: 065
     Dates: start: 20210220
  3. DEXAMETHASONE [Suspect]
     Active Substance: DEXAMETHASONE
     Indication: Plasma cell myeloma
     Route: 065
     Dates: start: 20210304, end: 20210308
  4. DEXAMETHASONE [Suspect]
     Active Substance: DEXAMETHASONE
     Indication: Plasma cell myeloma
     Route: 065
     Dates: start: 20210309, end: 20210313
  5. IRBESARTAN [Concomitant]
     Active Substance: IRBESARTAN
     Indication: Chronic obstructive pulmonary disease
     Dates: start: 20210218, end: 20210613
  6. IRBESARTAN [Concomitant]
     Active Substance: IRBESARTAN
     Indication: Chronic obstructive pulmonary disease
  7. GLYCEROPHOSPHORIC ACID [Concomitant]
     Indication: Product used for unknown indication
     Dosage: 20 MML
     Dates: start: 20210612, end: 20210702
  8. GLYCOPYRRONIUM\INDACATEROL [Concomitant]
     Active Substance: GLYCOPYRRONIUM\INDACATEROL
     Indication: Peripheral sensory neuropathy
     Dates: start: 20210218
  9. CLEMASTINE [Concomitant]
     Active Substance: CLEMASTINE
     Indication: Prophylaxis
     Dates: start: 20210412, end: 20210412
  10. CLEMASTINE [Concomitant]
     Active Substance: CLEMASTINE
     Indication: Prophylaxis
     Dates: start: 20210315, end: 20210315
  11. CLEMASTINE [Concomitant]
     Active Substance: CLEMASTINE
     Indication: Prophylaxis
     Dates: start: 20210526
  12. CLEMASTINE [Concomitant]
     Active Substance: CLEMASTINE
     Indication: Prophylaxis
     Dates: start: 20210322, end: 20210322
  13. CLEMASTINE [Concomitant]
     Active Substance: CLEMASTINE
     Indication: Prophylaxis
     Dates: start: 20210406, end: 20210406
  14. CLEMASTINE [Concomitant]
     Active Substance: CLEMASTINE
     Indication: Prophylaxis
     Dates: start: 20210329, end: 20210329
  15. PANTOPRAZOLE [Concomitant]
     Active Substance: PANTOPRAZOLE
     Indication: SARS-CoV-2 sepsis
     Dates: start: 20210612, end: 20210708
  16. LENALIDOMIDE [Suspect]
     Active Substance: LENALIDOMIDE
     Indication: Plasma cell myeloma
     Route: 048
     Dates: start: 20210607, end: 20210610
  17. FLUTICASONE FUROATE [Concomitant]
     Active Substance: FLUTICASONE FUROATE
     Indication: Product used for unknown indication
     Dosage: LAST ADMINISTRATION WAS 2021
     Route: 045
     Dates: start: 20210218
  18. FLUTICASONE FUROATE [Concomitant]
     Active Substance: FLUTICASONE FUROATE
     Indication: Product used for unknown indication
     Route: 045
     Dates: start: 20210610, end: 20210613
  19. ACETAMINOPHEN [Concomitant]
     Active Substance: ACETAMINOPHEN
     Indication: Peripheral motor neuropathy
     Dates: start: 20210322, end: 20210322
  20. ACETAMINOPHEN [Concomitant]
     Active Substance: ACETAMINOPHEN
     Indication: Peripheral motor neuropathy
     Dates: start: 20210315, end: 20210315
  21. ACETAMINOPHEN [Concomitant]
     Active Substance: ACETAMINOPHEN
     Indication: Peripheral motor neuropathy
     Dosage: LAST ADMIN DATE WAS 2021
     Dates: start: 20210412
  22. ACETAMINOPHEN [Concomitant]
     Active Substance: ACETAMINOPHEN
     Indication: Peripheral motor neuropathy
     Dates: start: 20210406, end: 20210406
  23. ACETAMINOPHEN [Concomitant]
     Active Substance: ACETAMINOPHEN
     Indication: Peripheral motor neuropathy
     Dates: start: 20210329, end: 20210329
  24. ACETAMINOPHEN [Concomitant]
     Active Substance: ACETAMINOPHEN
     Indication: Peripheral motor neuropathy
     Dates: start: 20210520
  25. ACETAMINOPHEN [Concomitant]
     Active Substance: ACETAMINOPHEN
     Indication: Peripheral motor neuropathy
     Dosage: LAST ADMIN DATE WAS 2021
     Dates: start: 20210218
  26. OXYCODONE [Concomitant]
     Active Substance: OXYCODONE\OXYCODONE HYDROCHLORIDE
     Indication: Prophylaxis
     Dates: start: 20210223, end: 20210223
  27. OXYCODONE [Concomitant]
     Active Substance: OXYCODONE\OXYCODONE HYDROCHLORIDE
     Indication: Prophylaxis
     Dates: start: 20210510, end: 20210520
  28. OXYCODONE [Concomitant]
     Active Substance: OXYCODONE\OXYCODONE HYDROCHLORIDE
     Indication: Prophylaxis
     Dates: start: 20210223, end: 20210303
  29. FLUCONAZOLE [Concomitant]
     Active Substance: FLUCONAZOLE
     Indication: Prophylaxis
     Dates: start: 20210315, end: 20210607
  30. PANTOPRAZOLE SODIUM [Concomitant]
     Active Substance: PANTOPRAZOLE SODIUM
     Indication: Prophylaxis
     Dates: start: 20210218, end: 20210613
  31. MAGNESIUM GLUCONATE [Concomitant]
     Active Substance: MAGNESIUM GLUCONATE
     Indication: Atrial fibrillation
     Dates: start: 20210503, end: 20210613
  32. CARFILZOMIB [Suspect]
     Active Substance: CARFILZOMIB
     Indication: Plasma cell myeloma
     Route: 042
     Dates: start: 20210607, end: 20210607
  33. VALACYCLOVIR HYDROCHLORIDE [Concomitant]
     Active Substance: VALACYCLOVIR HYDROCHLORIDE
     Indication: Prophylaxis
     Dates: start: 20210315, end: 20210610
  34. NADROPARIN [Concomitant]
     Active Substance: NADROPARIN
     Indication: Prophylaxis
     Dates: start: 20210218, end: 20210224
  35. FUROSEMIDE [Concomitant]
     Active Substance: FUROSEMIDE
     Indication: Oedema
     Dates: start: 20210329, end: 20210613
  36. FUROSEMIDE [Concomitant]
     Active Substance: FUROSEMIDE
     Indication: Oedema
     Dates: start: 20210613, end: 20210614
  37. ISATUXIMAB [Suspect]
     Active Substance: ISATUXIMAB
     Indication: Plasma cell myeloma
     Route: 042
     Dates: start: 20210607, end: 20210607
  38. CARBASPIRIN CALCIUM [Concomitant]
     Active Substance: CARBASPIRIN CALCIUM
     Indication: Prophylaxis
     Dates: start: 20210315, end: 20210708
  39. COTRIMOXAZOLE [Concomitant]
     Active Substance: SULFAMETHOXAZOLE\TRIMETHOPRIM
     Indication: Prophylaxis
     Dates: start: 20210322, end: 20210523
  40. ZOLEDRONIC ACID [Concomitant]
     Active Substance: ZOLEDRONIC ACID
     Indication: Prophylaxis
     Dates: start: 20210329
  41. ZOLEDRONIC ACID [Concomitant]
     Active Substance: ZOLEDRONIC ACID
     Indication: Prophylaxis
     Dosage: LAST ADMIN DATE WAS MAR 2021
     Dates: start: 20210315
  42. RASBURICASE [Concomitant]
     Active Substance: RASBURICASE
     Indication: Prophylaxis
     Dates: start: 20210315, end: 20210315
  43. TOCILIZUMAB [Concomitant]
     Active Substance: TOCILIZUMAB
     Indication: Product used for unknown indication
     Dates: start: 20210610, end: 20210610
  44. DEXAMETHASONE [Suspect]
     Active Substance: DEXAMETHASONE
     Indication: Product used for unknown indication
     Route: 048
     Dates: start: 20210607, end: 20210607
  45. DEXAMETHASONE [Suspect]
     Active Substance: DEXAMETHASONE
     Indication: Product used for unknown indication
     Route: 065
     Dates: start: 20210610, end: 20210611

REACTIONS (1)
  - SARS-CoV-2 sepsis [Fatal]

NARRATIVE: CASE EVENT DATE: 20210610
